FAERS Safety Report 9239594 (Version 2)
Quarter: 2013Q2

REPORT INFORMATION
  Report Type: Spontaneous
  Country: US (occurrence: US)
  Receive Date: 20130418
  Receipt Date: 20130510
  Transmission Date: 20140414
  Serious: No
  Sender: FDA-Public Use
  Company Number: US-ASTRAZENECA-2013SE21892

PATIENT
  Age: 34 Year
  Sex: Female
  Weight: 112.5 kg

DRUGS (8)
  1. SEROQUEL [Suspect]
     Indication: BIPOLAR DISORDER
     Route: 048
     Dates: start: 20130318, end: 20130331
  2. SEROQUEL [Suspect]
     Indication: BIPOLAR DISORDER
     Route: 048
     Dates: start: 20130401
  3. NEXIUM [Suspect]
     Route: 048
  4. OMEPRAZOLE [Suspect]
     Indication: GASTROOESOPHAGEAL REFLUX DISEASE
     Route: 048
     Dates: start: 2007
  5. OMEPRAZOLE [Suspect]
     Indication: GASTROOESOPHAGEAL REFLUX DISEASE
     Route: 048
  6. CLONAZEPAM [Concomitant]
  7. PRAMITEXOLE [Concomitant]
     Indication: RESTLESS LEGS SYNDROME
  8. DILTILAZEM [Concomitant]
     Indication: BLOOD PRESSURE ABNORMAL

REACTIONS (5)
  - Impatience [Unknown]
  - Restless legs syndrome [Unknown]
  - Irritability [Recovering/Resolving]
  - Intentional drug misuse [Unknown]
  - Incorrect dose administered [Unknown]
